FAERS Safety Report 9177161 (Version 1)
Quarter: 2013Q1

REPORT INFORMATION
  Report Type: Spontaneous
  Country: FR (occurrence: FR)
  Receive Date: 20130321
  Receipt Date: 20130321
  Transmission Date: 20140127
  Serious: Yes (Hospitalization)
  Sender: FDA-Public Use
  Company Number: FR-ASTRAZENECA-2013SE17347

PATIENT
  Age: 26882 Day
  Sex: Male

DRUGS (5)
  1. OMEPRAZOLE [Suspect]
     Indication: PRODUCT USED FOR UNKNOWN INDICATION
     Route: 048
  2. CRESTOR [Suspect]
     Indication: HYPERCHOLESTEROLAEMIA
     Route: 048
  3. ZANIDIP [Suspect]
     Indication: HYPERTENSION
     Route: 048
  4. COTAREG [Suspect]
     Indication: HYPERTENSION
     Dosage: 80 MG/12.5 MG DAILY
     Route: 048
  5. IXPRIM [Suspect]
     Indication: PAIN
     Dosage: DAILY
     Route: 048

REACTIONS (1)
  - Pancreatitis acute [Recovered/Resolved]
